FAERS Safety Report 17219018 (Version 1)
Quarter: 2019Q4

REPORT INFORMATION
  Report Type: Spontaneous
  Country: CN (occurrence: CN)
  Receive Date: 20191231
  Receipt Date: 20191231
  Transmission Date: 20200122
  Serious: Yes (Hospitalization)
  Sender: FDA-Public Use
  Company Number: CN-PFIZER INC-2019557192

PATIENT
  Age: 51 Year
  Sex: Male
  Weight: 55 kg

DRUGS (3)
  1. ZYVOX [Suspect]
     Active Substance: LINEZOLID
     Indication: NOCARDIOSIS
     Dosage: 600 MG, 2X/DAY
     Dates: start: 20191106, end: 20191111
  2. ZYVOX [Suspect]
     Active Substance: LINEZOLID
     Indication: NOCARDIOSIS
     Dosage: 600 MG, 2X/DAY
     Route: 048
     Dates: start: 20191112, end: 20191116
  3. SULFAMETHOXAZOLE, SULFADIAZINE AND TRIMETHOPRIM [Concomitant]
     Indication: NOCARDIOSIS
     Dosage: 2 DF, 3X/DAY
     Route: 048
     Dates: start: 20191028, end: 20191225

REACTIONS (6)
  - Nausea [Unknown]
  - Off label use [Unknown]
  - Platelet count decreased [Recovered/Resolved]
  - Decreased appetite [Unknown]
  - Full blood count decreased [Unknown]
  - Product use in unapproved indication [Unknown]

NARRATIVE: CASE EVENT DATE: 20191116
